FAERS Safety Report 24675421 (Version 1)
Quarter: 2024Q4

REPORT INFORMATION
  Report Type: Spontaneous
  Country: US (occurrence: US)
  Receive Date: 20241128
  Receipt Date: 20241128
  Transmission Date: 20250114
  Serious: Yes (Hospitalization, Other)
  Sender: ALEXION PHARMACEUTICALS
  Company Number: US-ASTRAZENECA-202411USA018632US

PATIENT

DRUGS (7)
  1. EVUSHELD [Suspect]
     Active Substance: CILGAVIMAB\TIXAGEVIMAB
     Dosage: UNK
     Route: 065
  2. EVUSHELD [Suspect]
     Active Substance: CILGAVIMAB\TIXAGEVIMAB
     Dosage: UNK
     Route: 065
  3. OCTAGAM IMMUNE GLOBULIN (HUMAN) [Suspect]
     Active Substance: HUMAN IMMUNOGLOBULIN G
     Route: 065
  4. OBINUTUZUMAB [Suspect]
     Active Substance: OBINUTUZUMAB
     Dosage: UNK
     Route: 065
  5. ALLOPURINOL [Suspect]
     Active Substance: ALLOPURINOL
     Dosage: 300 MILLIGRAM
     Route: 065
  6. PREDNISONE [Concomitant]
     Active Substance: PREDNISONE
  7. VENETOCLAX [Concomitant]
     Active Substance: VENETOCLAX

REACTIONS (13)
  - Groin pain [Unknown]
  - Hepatosplenomegaly [Unknown]
  - Adenopathy syphilitic [Unknown]
  - Rash [Recovered/Resolved]
  - Pneumonia [Unknown]
  - Rhinovirus infection [Unknown]
  - Hypogammaglobulinaemia [Unknown]
  - Pruritus [Recovered/Resolved]
  - Infusion related reaction [Unknown]
  - Lymphocytosis [Recovered/Resolved]
  - Vomiting [Unknown]
  - Flushing [Unknown]
  - Gout [Unknown]
